FAERS Safety Report 15591535 (Version 5)
Quarter: 2019Q3

REPORT INFORMATION
  Report Type: Report from Study
  Country: JP (occurrence: JP)
  Receive Date: 20181106
  Receipt Date: 20190926
  Transmission Date: 20191004
  Serious: Yes (Hospitalization)
  Sender: FDA-Public Use
  Company Number: JP-ASTRAZENECA-2018SF44694

PATIENT
  Age: 52 Year
  Sex: Male
  Weight: 79 kg

DRUGS (14)
  1. ASPIRIN. [Concomitant]
     Active Substance: ASPIRIN
     Dosage: 100 MG DAILY (NUMBER OF SEPARATE DOSAGES UNKNOWN)
     Route: 065
  2. SODIUM RABEPRAZOLE [Concomitant]
     Active Substance: RABEPRAZOLE SODIUM
     Indication: PROPHYLAXIS
     Dosage: 10 MG DAILY (NUMBER OF SEPARATE DOSAGES UNKNOWN)
     Route: 048
  3. DIART [Concomitant]
     Active Substance: AZOSEMIDE
     Dosage: NUMBER OF SEPARATE DOSAGES UNKNOWN
     Route: 048
     Dates: start: 20171019
  4. PITAVASTATIN CALCIUM [Concomitant]
     Active Substance: PITAVASTATIN CALCIUM
     Dosage: NUMBER OF SEPARATE DOSAGES UNKNOWN
     Route: 048
  5. ENALAPRIL MALEATE. [Concomitant]
     Active Substance: ENALAPRIL MALEATE
     Indication: ACUTE MYOCARDIAL INFARCTION
     Dosage: NUMBER OF SEPARATE DOSAGES UNKNOWN
     Route: 048
  6. SUGLAT [Suspect]
     Active Substance: IPRAGLIFLOZIN L-PROLINE
     Route: 048
     Dates: start: 20180410
  7. TENELIA [Suspect]
     Active Substance: TENELIGLIPTIN
     Route: 048
     Dates: start: 20180501
  8. CARVEDILOL. [Concomitant]
     Active Substance: CARVEDILOL
     Indication: ACUTE MYOCARDIAL INFARCTION
     Dosage: 5 MG DAILY (NUMBER OF SEPARATE DOSAGES UNKNOWN)
     Route: 048
  9. ZETIA [Concomitant]
     Active Substance: EZETIMIBE
     Dosage: NUMBER OF SEPARATE DOSAGES UNKNOWN
     Route: 048
  10. INSULIN GLARGINE BS[BIOSIMILAR 1] [Concomitant]
     Active Substance: INSULIN GLARGINE
     Dosage: NUMBER OF SEPARATE DOSAGES UNKNOWN
     Route: 065
     Dates: end: 20171120
  11. HUMALOG [Concomitant]
     Active Substance: INSULIN LISPRO
     Dosage: NUMBER OF SEPARATE DOSAGES UNKNOWN
     Route: 065
     Dates: start: 20170930, end: 20180115
  12. BRILINTA [Suspect]
     Active Substance: TICAGRELOR
     Indication: ACUTE MYOCARDIAL INFARCTION
     Route: 048
     Dates: start: 20170925, end: 20181120
  13. BRILINTA [Suspect]
     Active Substance: TICAGRELOR
     Indication: ACUTE MYOCARDIAL INFARCTION
     Route: 048
     Dates: start: 20170924, end: 20170924
  14. SPIRONOLACTONE. [Concomitant]
     Active Substance: SPIRONOLACTONE
     Indication: ACUTE MYOCARDIAL INFARCTION
     Dosage: NUMBER OF SEPARATE DOSAGES UNKNOWN
     Route: 048
     Dates: start: 20170926

REACTIONS (7)
  - Diabetes mellitus [Not Recovered/Not Resolved]
  - Anaemia [Recovered/Resolved]
  - Irritable bowel syndrome [Recovered/Resolved]
  - Gastrooesophageal reflux disease [Recovering/Resolving]
  - Diarrhoea [Recovered/Resolved]
  - Hyperuricaemia [Not Recovered/Not Resolved]
  - Rib fracture [Unknown]

NARRATIVE: CASE EVENT DATE: 20170927
